FAERS Safety Report 7793246-6 (Version None)
Quarter: 2011Q4

REPORT INFORMATION
  Report Type: 
  Country: None (occurrence: None)
  Receive Date: 20111003
  Receipt Date: 20110923
  Transmission Date: 20120403
  Serious: Yes (Other)
  Sender: FDA-Public Use
  Company Number: US-ASTRAZENECA-2011SE57307

PATIENT
  Age: 30 Year
  Sex: Male
  Weight: 81.6 kg

DRUGS (2)
  1. SEROQUEL [Suspect]
     Dosage: THREE TABLETS
     Route: 048
  2. SEROQUEL [Suspect]
     Dosage: ONE TABLETS
     Route: 048

REACTIONS (2)
  - UPPER LIMB FRACTURE [None]
  - INCORRECT DOSE ADMINISTERED [None]
